FAERS Safety Report 14946457 (Version 2)
Quarter: 2018Q2

REPORT INFORMATION
  Report Type: Spontaneous
  Country: JP (occurrence: JP)
  Receive Date: 20180529
  Receipt Date: 20180609
  Transmission Date: 20180711
  Serious: Yes (Death, Other)
  Sender: FDA-Public Use
  Company Number: JP-ROCHE-2129967

PATIENT
  Age: 57 Year
  Sex: Female

DRUGS (17)
  1. ALOXI [Concomitant]
     Active Substance: PALONOSETRON HYDROCHLORIDE
     Dosage: DOSAGE IS UNCERTAIN.
     Route: 065
  2. DECADRON [Concomitant]
     Active Substance: DEXAMETHASONE
     Dosage: DOSAGE IS UNCERTAIN.
     Route: 065
  3. FENTOS (JAPAN) [Concomitant]
     Active Substance: FENTANYL
     Route: 062
  4. EXEMESTANE. [Concomitant]
     Active Substance: EXEMESTANE
  5. ERIBULIN [Concomitant]
     Active Substance: ERIBULIN
  6. LOXOPROFEN SODIUM HYDRATE [Concomitant]
     Active Substance: LOXOPROFEN SODIUM DIHYDRATE
     Route: 048
  7. LETROZOLE. [Concomitant]
     Active Substance: LETROZOLE
  8. MEDROXYPROGESTERONE ACETATE. [Concomitant]
     Active Substance: MEDROXYPROGESTERONE ACETATE
  9. REBAMIPIDE [Concomitant]
     Active Substance: REBAMIPIDE
     Route: 048
  10. FULVESTRANT. [Concomitant]
     Active Substance: FULVESTRANT
  11. EVEROLIMUS. [Concomitant]
     Active Substance: EVEROLIMUS
  12. PACLITAXEL. [Concomitant]
     Active Substance: PACLITAXEL
     Indication: BREAST CANCER
     Dosage: DOSAGE IS UNCERTAIN.
     Route: 041
     Dates: start: 20170419, end: 20170628
  13. ZOLPIDEM TARTRATE. [Concomitant]
     Active Substance: ZOLPIDEM TARTRATE
     Dosage: DOSE INTERVAL UNCERTAINTY
     Route: 048
  14. AVASTIN [Suspect]
     Active Substance: BEVACIZUMAB
     Indication: BREAST CANCER
     Dosage: DOSAGE IS UNCERTAIN.
     Route: 041
     Dates: start: 20170419, end: 20170628
  15. INTRALIPOS [Concomitant]
     Active Substance: SOYBEAN OIL
     Dosage: DOSE INTERVAL UNCERTAINTY
     Route: 041
  16. ANASTROZOLE. [Concomitant]
     Active Substance: ANASTROZOLE
  17. TOREMIFENE [Concomitant]
     Active Substance: TOREMIFENE

REACTIONS (3)
  - Cerebral infarction [Fatal]
  - Trousseau^s syndrome [Fatal]
  - Intestinal obstruction [Unknown]

NARRATIVE: CASE EVENT DATE: 20170708
